FAERS Safety Report 6084143-5 (Version None)
Quarter: 2009Q1

REPORT INFORMATION
  Report Type: 
  Country: None (occurrence: None)
  Receive Date: 20090219
  Receipt Date: 20090211
  Transmission Date: 20090719
  Serious: Yes (Other)
  Sender: FDA-Public Use
  Company Number: CA-JNJFOC-20090203854

PATIENT
  Sex: Female

DRUGS (1)
  1. TYLENOL ULTRA [Suspect]
     Indication: DRUG USE FOR UNKNOWN INDICATION
     Route: 048

REACTIONS (2)
  - DEPENDENCE [None]
  - INTENTIONAL OVERDOSE [None]
